FAERS Safety Report 19788814 (Version 1)
Quarter: 2021Q3

REPORT INFORMATION
  Report Type: Spontaneous
  Country: US (occurrence: US)
  Receive Date: 20210905
  Receipt Date: 20210905
  Transmission Date: 20211014
  Serious: No
  Sender: FDA-Public Use
  Company Number: US-ASTRAZENECA-2021A702428

PATIENT
  Sex: Female
  Weight: 136.1 kg

DRUGS (9)
  1. MULTIPLE CONCENTRATED VITAMIN [Concomitant]
     Indication: EYE DISORDER
  2. SYMBICORT [Suspect]
     Active Substance: BUDESONIDE\FORMOTEROL FUMARATE DIHYDRATE
     Indication: CHRONIC OBSTRUCTIVE PULMONARY DISEASE
     Route: 055
  3. WARFARIN [Concomitant]
     Active Substance: WARFARIN
  4. DILTIAZEM. [Concomitant]
     Active Substance: DILTIAZEM
     Indication: CARDIAC DISORDER
  5. POTASSIUM [Concomitant]
     Active Substance: POTASSIUM
  6. LASIX [Concomitant]
     Active Substance: FUROSEMIDE
  7. CALCIUM OTC [Concomitant]
  8. PRILOSEC OTC [Suspect]
     Active Substance: OMEPRAZOLE MAGNESIUM
     Indication: GASTROINTESTINAL DISORDER
     Route: 048
  9. VITMAIN D3 [Concomitant]

REACTIONS (8)
  - Macular degeneration [Not Recovered/Not Resolved]
  - Lung disorder [Not Recovered/Not Resolved]
  - Polyarthritis [Not Recovered/Not Resolved]
  - Cardiac disorder [Not Recovered/Not Resolved]
  - Back disorder [Unknown]
  - Intervertebral disc degeneration [Not Recovered/Not Resolved]
  - Body height decreased [Unknown]
  - Device malfunction [Not Recovered/Not Resolved]
